FAERS Safety Report 23521872 (Version 1)
Quarter: 2024Q1

REPORT INFORMATION
  Report Type: 
  Country: None (occurrence: None)
  Receive Date: 20240214
  Receipt Date: 20240214
  Transmission Date: 20240410
  Serious: No
  Sender: FDA-Public Use
  Company Number: DE-ROCHE-3325843

PATIENT

DRUGS (9)
  1. OCREVUS [Suspect]
     Active Substance: OCRELIZUMAB
     Dates: start: 20181218, end: 20190109
  2. OCREVUS [Suspect]
     Active Substance: OCRELIZUMAB
     Dates: start: 20190709
  3. COMIRNATY (TOZINAMERAN) [Concomitant]
     Active Substance: TOZINAMERAN
     Dates: start: 20210427, end: 20210427
  4. COMIRNATY (TOZINAMERAN) [Concomitant]
     Active Substance: TOZINAMERAN
     Dates: start: 20210518, end: 20210518
  5. COMIRNATY (TOZINAMERAN) [Concomitant]
     Active Substance: TOZINAMERAN
     Dates: start: 20211208, end: 20211208
  6. INFLUVAC [Concomitant]
     Active Substance: INFLUENZA VIRUS VACCINE TRIVALENT TYPE A+B
     Dates: start: 20200319, end: 20200319
  7. INFLUVAC [Concomitant]
     Active Substance: INFLUENZA VIRUS VACCINE TRIVALENT TYPE A+B
     Dates: start: 20200925, end: 20200925
  8. INFLUVAC [Concomitant]
     Active Substance: INFLUENZA VIRUS VACCINE TRIVALENT TYPE A+B
     Dates: start: 20211102, end: 20211102
  9. PNEUMOVAX 23 [Concomitant]
     Active Substance: PNEUMOCOCCAL VACCINE, POLYVALENT 23
     Dates: start: 20200319, end: 20200319

REACTIONS (4)
  - Selective IgG subclass deficiency [None]
  - COVID-19 [None]
  - Sinusitis [None]
  - Hypogammaglobulinaemia [None]

NARRATIVE: CASE EVENT DATE: 20230115
